FAERS Safety Report 6745753-2 (Version None)
Quarter: 2010Q2

REPORT INFORMATION
  Report Type: 
  Country: None (occurrence: None)
  Receive Date: 20100528
  Receipt Date: 20100520
  Transmission Date: 20101027
  Serious: Yes (Hospitalization)
  Sender: FDA-Public Use
  Company Number: FR-JNJFOC-20100508042

PATIENT
  Age: 55 Year
  Sex: Female

DRUGS (7)
  1. TAVANIC [Suspect]
     Indication: PROPHYLAXIS
     Route: 048
  2. PIPERACILLIN [Suspect]
     Indication: PROPHYLAXIS
     Route: 065
  3. SECTRAL [Concomitant]
     Route: 065
  4. CORTANCYL [Concomitant]
     Route: 065
  5. METHOTREXATE [Concomitant]
     Route: 065
  6. NASACORT [Concomitant]
     Route: 065
  7. CLARITIN [Concomitant]
     Route: 065

REACTIONS (9)
  - ANAPHYLACTIC REACTION [None]
  - ANGIOEDEMA [None]
  - ASTHENIA [None]
  - CHILLS [None]
  - DIARRHOEA [None]
  - DYSPNOEA [None]
  - PRURITUS [None]
  - RHINORRHOEA [None]
  - VOMITING [None]
